FAERS Safety Report 13812843 (Version 1)
Quarter: 2017Q3

REPORT INFORMATION
  Report Type: Spontaneous
  Country: FR (occurrence: FR)
  Receive Date: 20170729
  Receipt Date: 20170729
  Transmission Date: 20171127
  Serious: Yes (Hospitalization, Other)
  Sender: FDA-Public Use
  Company Number: FR-BRISTOL-MYERS SQUIBB COMPANY-BMS-2017-066450

PATIENT
  Age: 42 Year
  Sex: Female

DRUGS (4)
  1. BACTRIM [Suspect]
     Active Substance: SULFAMETHOXAZOLE\TRIMETHOPRIM
     Indication: ANTIRETROVIRAL THERAPY
     Dosage: 1 DF, UNK
     Route: 048
  2. EPIVIR [Suspect]
     Active Substance: LAMIVUDINE
     Indication: ANTIRETROVIRAL THERAPY
     Dosage: 1 UNK, UNK
     Route: 048
  3. CRIXIVAN [Suspect]
     Active Substance: INDINAVIR SULFATE
     Indication: ANTIRETROVIRAL THERAPY
     Dosage: 2 UNK, UNK
     Route: 048
  4. ZERIT [Suspect]
     Active Substance: STAVUDINE
     Indication: ANTIRETROVIRAL THERAPY
     Dosage: 1 UNK, UNK
     Route: 048

REACTIONS (1)
  - Osteonecrosis [Recovered/Resolved]

NARRATIVE: CASE EVENT DATE: 199905
